FAERS Safety Report 8027145-1 (Version None)
Quarter: 2011Q4

REPORT INFORMATION
  Report Type: 
  Country: None (occurrence: None)
  Receive Date: 20111130
  Receipt Date: 20110705
  Transmission Date: 20120403
  Serious: Yes (Other)
  Sender: FDA-Public Use
  Company Number: US201104003729

PATIENT
  Age: 55 Year
  Sex: Female

DRUGS (13)
  1. ASPIRIN [Concomitant]
  2. METOPROLOL TARTRATE [Concomitant]
  3. SIMAVSTATIN (SIMVASTATIN) [Concomitant]
  4. AMLODIPINE [Concomitant]
  5. METFORMIN HCL [Concomitant]
  6. FENOFIBRATE [Concomitant]
  7. CINNAMON (CNINAMOMUM VERUM) [Concomitant]
  8. LISINOPRIL [Concomitant]
  9. GLIPIZIDE [Concomitant]
  10. BYETTA [Suspect]
     Indication: TYPE 2 DIABETES MELLITUS
     Dosage: 5 UG, BID, SUBCUTANEOUS
     Route: 058
     Dates: start: 20110223, end: 20110314
  11. CALCIUM MAGNESIUM ZINC (CALCIUM, MAGNESIUM, ZINC) [Concomitant]
  12. CALTRATE + D (CALCIUM CARBONATE, COLECALCIFEROL) [Concomitant]
  13. VITAMIN D [Concomitant]

REACTIONS (2)
  - ANGIOEDEMA [None]
  - RASH [None]
